FAERS Safety Report 22279014 (Version 1)
Quarter: 2023Q2

REPORT INFORMATION
  Report Type: Spontaneous
  Country: US (occurrence: US)
  Receive Date: 20230503
  Receipt Date: 20230503
  Transmission Date: 20230721
  Serious: No
  Sender: FDA-Public Use
  Company Number: US-SA-SAC20230426001086

PATIENT
  Age: 9 Year
  Sex: Male

DRUGS (1)
  1. FABRAZYME [Suspect]
     Active Substance: AGALSIDASE BETA
     Indication: Fabry^s disease
     Dosage: 90 MG
     Route: 042
     Dates: start: 200505, end: 2017

REACTIONS (13)
  - White blood cell count decreased [Unknown]
  - Plasma cells decreased [Unknown]
  - Bone density decreased [Unknown]
  - Sinus bradycardia [Unknown]
  - Ligament sprain [Unknown]
  - Ankle fracture [Unknown]
  - Angiokeratoma [Unknown]
  - COVID-19 [Recovered/Resolved]
  - Urticaria [Unknown]
  - Dyspnoea [Unknown]
  - Paraesthesia [Unknown]
  - Pain in extremity [Unknown]
  - Inappropriate schedule of product administration [Unknown]

NARRATIVE: CASE EVENT DATE: 20050101
